FAERS Safety Report 18305288 (Version 1)
Quarter: 2020Q3

REPORT INFORMATION
  Report Type: Report from Study
  Country: CA (occurrence: CA)
  Receive Date: 20200923
  Receipt Date: 20200923
  Transmission Date: 20201103
  Serious: Yes (Other)
  Sender: FDA-Public Use
  Company Number: CA-BAUSCH-BL-2020-026760

PATIENT
  Sex: Male

DRUGS (4)
  1. SINGULAIR [Suspect]
     Active Substance: MONTELUKAST SODIUM
     Indication: ASTHMA
  2. SPIRIVA [Suspect]
     Active Substance: TIOTROPIUM BROMIDE MONOHYDRATE
     Indication: ASTHMA
  3. ADVAIR HFA [Suspect]
     Active Substance: FLUTICASONE PROPIONATE\SALMETEROL XINAFOATE
     Indication: ASTHMA
  4. SALBUTAMOL SULFATE [Suspect]
     Active Substance: ALBUTEROL SULFATE
     Indication: ASTHMA

REACTIONS (9)
  - Eosinophilia [Unknown]
  - Obstruction [Unknown]
  - Lung hyperinflation [Unknown]
  - Therapeutic product effect incomplete [Unknown]
  - Alpha-1 antitrypsin deficiency [Unknown]
  - Asthma [Unknown]
  - Blood count abnormal [Unknown]
  - Eosinophil count increased [Unknown]
  - Condition aggravated [Unknown]
